FAERS Safety Report 21171516 (Version 2)
Quarter: 2022Q3

REPORT INFORMATION
  Report Type: Spontaneous
  Country: AR (occurrence: AR)
  Receive Date: 20220804
  Receipt Date: 20220809
  Transmission Date: 20221027
  Serious: Yes (Other)
  Sender: FDA-Public Use
  Company Number: AR-PFIZER INC-PV202200032661

PATIENT
  Age: 71 Year
  Sex: Female
  Weight: 85 kg

DRUGS (11)
  1. IBRANCE [Suspect]
     Active Substance: PALBOCICLIB
     Dosage: 125 MG, CYCLIC (DAILY, SCHEME 3X1)
     Dates: start: 202004
  2. LETROZOLE [Concomitant]
     Active Substance: LETROZOLE
     Dosage: UNK
     Dates: start: 202004
  3. LEVOTHYROXINE [Concomitant]
     Active Substance: LEVOTHYROXINE
     Dosage: UNK
  4. DICLOFENAC [Concomitant]
     Active Substance: DICLOFENAC
     Dosage: UNK
  5. TRIMEBUTINE [Concomitant]
     Active Substance: TRIMEBUTINE
     Dosage: UNK
  6. SIMETHICONE (DIMETHICONE) [Concomitant]
     Active Substance: DIMETHICONE
     Dosage: UNK
  7. FEXOFENADINE [Concomitant]
     Active Substance: FEXOFENADINE HYDROCHLORIDE
     Dosage: UNK
  8. METFORMIN [Concomitant]
     Active Substance: METFORMIN HYDROCHLORIDE
     Dosage: UNK
  9. LOSARTAN [Concomitant]
     Active Substance: LOSARTAN
     Dosage: UNK
  10. INSULIN NOS [Concomitant]
     Active Substance: INSULIN NOS
  11. PANTOPRAZOLE [Concomitant]
     Active Substance: PANTOPRAZOLE

REACTIONS (7)
  - Dyspepsia [Unknown]
  - Azotaemia [Unknown]
  - Blood chloride increased [Unknown]
  - Gastrointestinal wall thickening [Unknown]
  - Bone erosion [Unknown]
  - Spinal flattening [Unknown]
  - Intervertebral disc degeneration [Unknown]

NARRATIVE: CASE EVENT DATE: 20220407
